FAERS Safety Report 4330886-0 (Version None)
Quarter: 2004Q1

REPORT INFORMATION
  Report Type: 
  Country: None (occurrence: None)
  Receive Date: 20040331
  Receipt Date: 20040316
  Transmission Date: 20041129
  Serious: Yes (Hospitalization)
  Sender: FDA-Public Use
  Company Number: S04-USA-01543-01

PATIENT
  Age: 12 Year
  Sex: Female

DRUGS (4)
  1. LEXAPRO [Suspect]
     Indication: DEPRESSION
     Dosage: 10 MG QD PO
     Route: 048
     Dates: start: 20040309, end: 20040315
  2. TOPAMAX [Concomitant]
  3. KLONOPIN [Concomitant]
  4. ELAVIL [Concomitant]

REACTIONS (1)
  - MYOCLONUS [None]
